FAERS Safety Report 9203811 (Version 2)
Quarter: 2013Q2

REPORT INFORMATION
  Report Type: Spontaneous
  Country: US (occurrence: US)
  Receive Date: 20130402
  Receipt Date: 20130530
  Transmission Date: 20140414
  Serious: Yes (Other)
  Sender: FDA-Public Use
  Company Number: US-PFIZER INC-2013101853

PATIENT
  Age: 66 Year
  Sex: Female

DRUGS (3)
  1. XELJANZ [Suspect]
     Indication: RHEUMATOID ARTHRITIS
     Dosage: 5 MG, 2X/DAY
     Route: 048
     Dates: start: 201212
  2. XELJANZ [Suspect]
     Dosage: 1 DF, 1X/DAY
     Route: 048
  3. XELJANZ [Suspect]
     Dosage: 1 TABLET DAILY ON ODD DAYS, 1 TABLET TWICE DAILY ON EVEN DAYS
     Route: 048

REACTIONS (1)
  - Rheumatoid arthritis [Unknown]
